FAERS Safety Report 20355196 (Version 1)
Quarter: 2022Q1

REPORT INFORMATION
  Report Type: Spontaneous
  Country: US (occurrence: US)
  Receive Date: 20220120
  Receipt Date: 20220120
  Transmission Date: 20220424
  Serious: No
  Sender: FDA-Public Use
  Company Number: US-BEH-2022140668

PATIENT
  Sex: Female

DRUGS (2)
  1. PRIVIGEN [Suspect]
     Active Substance: HUMAN IMMUNOGLOBULIN G
     Dosage: 40 GRAM
     Route: 065
     Dates: start: 20220107
  2. PRIVIGEN [Suspect]
     Active Substance: HUMAN IMMUNOGLOBULIN G
     Dosage: 40 UNK
     Route: 065
     Dates: start: 20220107

REACTIONS (5)
  - Tachycardia [Unknown]
  - Hypertension [Unknown]
  - Rash [Unknown]
  - Burning sensation [Unknown]
  - Dyspepsia [Unknown]

NARRATIVE: CASE EVENT DATE: 20220107
